FAERS Safety Report 7330822-9 (Version None)
Quarter: 2011Q1

REPORT INFORMATION
  Report Type: 
  Country: None (occurrence: None)
  Receive Date: 20110304
  Receipt Date: 20110228
  Transmission Date: 20110831
  Serious: Yes (Other)
  Sender: FDA-Public Use
  Company Number: US-PFIZER INC-2011043901

PATIENT
  Sex: Female

DRUGS (1)
  1. EFFEXOR [Suspect]
     Dosage: UNK

REACTIONS (7)
  - FEELING ABNORMAL [None]
  - DIARRHOEA [None]
  - DEHYDRATION [None]
  - DRY MOUTH [None]
  - PANIC ATTACK [None]
  - INSOMNIA [None]
  - FEELING JITTERY [None]
